FAERS Safety Report 13928471 (Version 1)
Quarter: 2017Q3

REPORT INFORMATION
  Report Type: Spontaneous
  Country: CA (occurrence: CA)
  Receive Date: 20170901
  Receipt Date: 20170901
  Transmission Date: 20171127
  Serious: Yes (Hospitalization)
  Sender: FDA-Public Use
  Company Number: CA-ALVOGEN-2017-ALVOGEN-093299

PATIENT
  Age: 24 Year
  Sex: Male

DRUGS (1)
  1. FENTANYL. [Suspect]
     Active Substance: FENTANYL
     Indication: PRODUCT USED FOR UNKNOWN INDICATION
     Route: 042

REACTIONS (4)
  - Tachycardia [Recovering/Resolving]
  - Depressed level of consciousness [Recovered/Resolved]
  - Haemoptysis [Recovered/Resolved]
  - Pulmonary oedema [Recovering/Resolving]
